FAERS Safety Report 21404096 (Version 1)
Quarter: 2022Q4

REPORT INFORMATION
  Report Type: Spontaneous
  Country: US (occurrence: US)
  Receive Date: 20221003
  Receipt Date: 20221003
  Transmission Date: 20230113
  Serious: No
  Sender: FDA-Public Use
  Company Number: US-TEVA-2022-US-2075411

PATIENT
  Sex: Male

DRUGS (1)
  1. FENTANYL [Suspect]
     Active Substance: FENTANYL
     Indication: Product used for unknown indication
     Route: 065

REACTIONS (7)
  - Emotional disorder [Unknown]
  - Abnormal behaviour [Unknown]
  - Hostility [Unknown]
  - Aggression [Unknown]
  - Somnolence [Unknown]
  - Somnolence [Unknown]
  - Drug ineffective [Unknown]
